FAERS Safety Report 4580089-X (Version None)
Quarter: 2005Q1

REPORT INFORMATION
  Report Type: 
  Country: None (occurrence: None)
  Receive Date: 20050214
  Receipt Date: 20050112
  Transmission Date: 20050727
  Serious: Yes (Disabling)
  Sender: FDA-Public Use
  Company Number: DE-MERCK-0501DEU00174

PATIENT
  Age: 78 Year
  Sex: Female
  Weight: 82 kg

DRUGS (6)
  1. VIOXX [Suspect]
     Indication: ANALGESIC THERAPY
     Route: 048
     Dates: start: 20040607, end: 20040616
  2. VIOXX [Suspect]
     Route: 048
     Dates: start: 20040602, end: 20040606
  3. VIOXX [Suspect]
     Route: 048
     Dates: start: 20040617, end: 20040701
  4. VIOXX [Suspect]
     Route: 048
     Dates: start: 20040701, end: 20041001
  5. NALOXONE HYDROCHLORIDE AND TILIDINE HYDROCHLORIDE [Concomitant]
     Indication: ANALGESIC THERAPY
     Route: 065
     Dates: start: 20040616, end: 20040707
  6. NADROPARIN CALCIUM [Concomitant]
     Indication: THROMBOSIS PROPHYLAXIS
     Route: 058
     Dates: start: 20040616, end: 20040621

REACTIONS (3)
  - GASTRIC DISORDER [None]
  - LABILE HYPERTENSION [None]
  - PAIN IN EXTREMITY [None]
